FAERS Safety Report 6440856-4 (Version None)
Quarter: 2009Q4

REPORT INFORMATION
  Report Type: 
  Country: None (occurrence: None)
  Receive Date: 20091116
  Receipt Date: 20091105
  Transmission Date: 20100525
  Serious: Yes (Hospitalization, Other)
  Sender: FDA-Public Use
  Company Number: US-ASTRAZENECA-2009SE24593

PATIENT
  Age: 50 Year
  Sex: Female

DRUGS (12)
  1. ARIMIDEX [Suspect]
     Indication: BREAST CANCER
     Route: 048
     Dates: start: 20090101, end: 20090101
  2. FASLODEX [Suspect]
     Indication: BREAST CANCER
     Dosage: 125 MG/2.5 ML
     Route: 030
     Dates: start: 20060101
  3. FASLODEX [Suspect]
     Dosage: 250 MG/ 5 ML
     Route: 030
     Dates: start: 20060101
  4. TAMOXIFEN CITRATE [Suspect]
     Route: 048
  5. ZERTEC [Concomitant]
     Indication: MULTIPLE ALLERGIES
  6. LEXAPRO [Concomitant]
  7. LODINE [Concomitant]
     Indication: ARTHRITIS
  8. CALCIUM [Concomitant]
  9. VIT B COMPLEX [Concomitant]
  10. VIT C [Concomitant]
  11. GLUCOSAMINE [Concomitant]
  12. AROMASIN [Concomitant]

REACTIONS (10)
  - ARTHRITIS [None]
  - CHEST DISCOMFORT [None]
  - COUGH [None]
  - DIZZINESS [None]
  - DYSPNOEA [None]
  - FACIAL BONES FRACTURE [None]
  - FALL [None]
  - HOT FLUSH [None]
  - PHARYNGEAL OEDEMA [None]
  - WHEEZING [None]
